FAERS Safety Report 5260458-5 (Version None)
Quarter: 2007Q1

REPORT INFORMATION
  Report Type: 
  Country: None (occurrence: None)
  Receive Date: 20070309
  Receipt Date: 20060918
  Transmission Date: 20070707
  Serious: No
  Sender: FDA-Public Use
  Company Number: US-GLAXOSMITHKLINE-A0620312A

PATIENT
  Age: 59 Year
  Sex: Female

DRUGS (2)
  1. NICORETTE (MINT) [Suspect]
  2. NICORETTE [Suspect]

REACTIONS (4)
  - GINGIVAL PAIN [None]
  - GLOSSODYNIA [None]
  - ORAL DISCOMFORT [None]
  - STOMATITIS [None]
